FAERS Safety Report 25244655 (Version 6)
Quarter: 2025Q4

REPORT INFORMATION
  Report Type: Report from Study
  Country: CA (occurrence: CA)
  Receive Date: 20250428
  Receipt Date: 20251124
  Transmission Date: 20260119
  Serious: Yes (Other)
  Sender: JOHNSON AND JOHNSON
  Company Number: CA-JNJFOC-20230455314

PATIENT
  Age: 52 Year
  Sex: Female
  Weight: 118 kg

DRUGS (8)
  1. REMICADE [Suspect]
     Active Substance: INFLIXIMAB
     Indication: Psoriatic arthropathy
     Route: 041
     Dates: start: 20190131
  2. REMICADE [Suspect]
     Active Substance: INFLIXIMAB
     Indication: Behcet^s syndrome
     Dosage: STRENGTH REPORTED AS 10 MG/ML?BATCH NUMBER 23F037, 24D017
     Route: 041
     Dates: start: 20190131
  3. REMICADE [Suspect]
     Active Substance: INFLIXIMAB
     Route: 041
     Dates: start: 20231120
  4. REMICADE [Suspect]
     Active Substance: INFLIXIMAB
     Route: 041
     Dates: start: 20240104
  5. REMICADE [Suspect]
     Active Substance: INFLIXIMAB
     Route: 041
     Dates: start: 20190131
  6. REMICADE [Suspect]
     Active Substance: INFLIXIMAB
     Route: 041
     Dates: start: 20190131
  7. REMICADE [Suspect]
     Active Substance: INFLIXIMAB
     Route: 041
     Dates: start: 20191031
  8. REMICADE [Suspect]
     Active Substance: INFLIXIMAB
     Route: 041

REACTIONS (11)
  - Endometritis [Not Recovered/Not Resolved]
  - Pseudomonas infection [Recovered/Resolved]
  - Psoriatic arthropathy [Not Recovered/Not Resolved]
  - Influenza like illness [Recovering/Resolving]
  - Rhinitis [Not Recovered/Not Resolved]
  - Sinusitis [Recovering/Resolving]
  - Psoriasis [Not Recovered/Not Resolved]
  - Rotator cuff syndrome [Not Recovered/Not Resolved]
  - Musculoskeletal pain [Not Recovered/Not Resolved]
  - Osteoarthritis [Not Recovered/Not Resolved]
  - Fibromyalgia [Not Recovered/Not Resolved]

NARRATIVE: CASE EVENT DATE: 20240201
